FAERS Safety Report 11595361 (Version 1)
Quarter: 2015Q4

REPORT INFORMATION
  Report Type: Spontaneous
  Country: GB (occurrence: GB)
  Receive Date: 20151006
  Receipt Date: 20151006
  Transmission Date: 20160304
  Serious: Yes (Death, Hospitalization, Other)
  Sender: FDA-Public Use
  Company Number: GB-ALEMBIC PHARMACUETICALS LIMITED-2015SCAL000673

PATIENT
  Age: 19 Month
  Sex: Male

DRUGS (2)
  1. METRONIDAZOLE. [Suspect]
     Active Substance: METRONIDAZOLE
     Indication: DIARRHOEA
     Dosage: 10 MG/KG, EVERY 6 HOURS, FOR 2.5 DAYS
     Route: 042
  2. METRONIDAZOLE. [Suspect]
     Active Substance: METRONIDAZOLE
     Dosage: 7.5 MG/KG, EVERY 6 HOURS, FOR ADDITIONAL 3.5 DAYS
     Route: 042

REACTIONS (4)
  - Acute hepatic failure [Fatal]
  - Toxicity to various agents [Fatal]
  - Shock [Fatal]
  - Hepatic necrosis [Fatal]
